FAERS Safety Report 11825200 (Version 2)
Quarter: 2015Q4

REPORT INFORMATION
  Report Type: Spontaneous
  Country: JP (occurrence: JP)
  Receive Date: 20151211
  Receipt Date: 20151229
  Transmission Date: 20160305
  Serious: Yes (Hospitalization)
  Sender: FDA-Public Use
  Company Number: JP-009507513-1512JPN003635

PATIENT
  Age: 64 Year
  Sex: Male

DRUGS (3)
  1. LOSARTAN POTASSIUM. [Suspect]
     Active Substance: LOSARTAN POTASSIUM
     Dosage: 50 MG, QD (DIVIDED DOSE FREQUENCY UNKNOWN)
     Route: 048
  2. MECOBALAMIN [Suspect]
     Active Substance: METHYLCOBALAMIN
     Dosage: 1500 MG/DAY (DIVIDED DOSE FREQUENCY UNKNOWN)
     Route: 065
  3. HYDROCHLOROTHIAZIDE. [Suspect]
     Active Substance: HYDROCHLOROTHIAZIDE
     Dosage: 12.5 MG, QD (DIVIDED DOSE FREQUENCY UNKNOWN)
     Route: 048

REACTIONS (1)
  - Gastritis bacterial [Recovering/Resolving]
